FAERS Safety Report 5022276-2 (Version None)
Quarter: 2006Q2

REPORT INFORMATION
  Report Type: 
  Country: None (occurrence: None)
  Receive Date: 20060609
  Receipt Date: 20060607
  Transmission Date: 20061013
  Serious: Yes (Other)
  Sender: FDA-Public Use
  Company Number: S2006US09667

PATIENT
  Sex: Female

DRUGS (3)
  1. COREG [Suspect]
     Indication: DRUG USE FOR UNKNOWN INDICATION
     Dosage: 25MG UNKNOWN
     Route: 048
  2. LASIX [Concomitant]
  3. DIOVAN [Concomitant]

REACTIONS (2)
  - BREAST CANCER [None]
  - CARDIAC FAILURE CONGESTIVE [None]
